FAERS Safety Report 7994377-8 (Version None)
Quarter: 2011Q4

REPORT INFORMATION
  Report Type: 
  Country: None (occurrence: None)
  Receive Date: 20111220
  Receipt Date: 20111207
  Transmission Date: 20120403
  Serious: Yes (Hospitalization)
  Sender: FDA-Public Use
  Company Number: CA-ELI_LILLY_AND_COMPANY-CA201102000340

PATIENT
  Age: 66 Year
  Sex: Female

DRUGS (13)
  1. FOLIC ACID [Concomitant]
  2. FORTEO [Suspect]
     Indication: OSTEOPOROSIS
     Dosage: 20 UG, DAILY (1/D)
     Route: 058
     Dates: start: 20100117
  3. NEXIUM [Concomitant]
  4. CALCIUM [Concomitant]
  5. HYDROCHLOROTHIAZIDE [Concomitant]
  6. ZOPICLONE [Concomitant]
  7. VITAMIN D [Concomitant]
  8. METHOTREXATE [Concomitant]
  9. CELEBREX [Concomitant]
  10. OXYCODONE HCL [Concomitant]
  11. PLAQUENIL [Concomitant]
  12. DIOVAN [Concomitant]
  13. CALCITONIN SALMON [Concomitant]

REACTIONS (2)
  - FRACTURE NONUNION [None]
  - LIMB DISCOMFORT [None]
